FAERS Safety Report 7373039-4 (Version None)
Quarter: 2011Q1

REPORT INFORMATION
  Report Type: 
  Country: None (occurrence: None)
  Receive Date: 20110324
  Receipt Date: 20110228
  Transmission Date: 20110831
  Serious: Yes (Hospitalization, Other)
  Sender: FDA-Public Use
  Company Number: US-BAYER-201027062NA

PATIENT
  Sex: Female
  Weight: 77.098 kg

DRUGS (2)
  1. ZOLOFT [Concomitant]
     Dosage: UNK
     Dates: start: 20020101, end: 20080101
  2. YAZ [Suspect]
     Indication: PRODUCT USED FOR UNKNOWN INDICATION
     Dosage: UNK UNK, UNK
     Route: 048
     Dates: start: 20070501, end: 20071001

REACTIONS (4)
  - GALLBLADDER INJURY [None]
  - CHOLECYSTITIS [None]
  - CHOLELITHIASIS [None]
  - ABDOMINAL PAIN [None]
